FAERS Safety Report 4374655-4 (Version None)
Quarter: 2004Q2

REPORT INFORMATION
  Report Type: 
  Country: None (occurrence: None)
  Receive Date: 20040604
  Receipt Date: 20040525
  Transmission Date: 20050107
  Serious: Yes (Other)
  Sender: FDA-Public Use
  Company Number: 2004215912US

PATIENT
  Age: 53 Year
  Sex: Female

DRUGS (1)
  1. HEPARIN SODIUM INJECTION [Suspect]
     Dosage: SEE IMAGE

REACTIONS (9)
  - ARTERIOVENOUS GRAFT [None]
  - BRADYCARDIA [None]
  - CARDIAC ARREST [None]
  - DYSPNOEA [None]
  - HAEMODIALYSIS [None]
  - HEPARIN-INDUCED THROMBOCYTOPENIA [None]
  - HYPOTENSION [None]
  - MYOCARDIAL INFARCTION [None]
  - RENAL IMPAIRMENT [None]
